FAERS Safety Report 6504903-3 (Version None)
Quarter: 2009Q4

REPORT INFORMATION
  Report Type: 
  Country: None (occurrence: None)
  Receive Date: 20091218
  Receipt Date: 20091208
  Transmission Date: 20100525
  Serious: Yes (Hospitalization)
  Sender: FDA-Public Use
  Company Number: US-SANOFI-AVENTIS-2009SA009003

PATIENT
  Age: 2 Week
  Sex: Female

DRUGS (2)
  1. CEFOTAXIME [Suspect]
     Indication: SEPSIS
     Route: 042
  2. AMPICILLIN [Concomitant]
     Indication: SEPSIS

REACTIONS (9)
  - ABDOMINAL DISTENSION [None]
  - BILIARY TRACT DISORDER [None]
  - BLOOD BILIRUBIN INCREASED [None]
  - FAECES PALE [None]
  - GAMMA-GLUTAMYLTRANSFERASE INCREASED [None]
  - HEPATOMEGALY [None]
  - JAUNDICE [None]
  - PYREXIA [None]
  - VOMITING [None]
